FAERS Safety Report 9672510 (Version 3)
Quarter: 2014Q2

REPORT INFORMATION
  Report Type: Spontaneous
  Country: JP (occurrence: JP)
  Receive Date: 20131106
  Receipt Date: 20140430
  Transmission Date: 20141212
  Serious: Yes (Death, Hospitalization, Other)
  Sender: FDA-Public Use
  Company Number: JP-ABBVIE-12P-087-0938381-00

PATIENT
  Age: 64 Year
  Sex: Female
  Weight: 44 kg

DRUGS (25)
  1. HUMIRA 40 MG/ 0.8 ML PRE-FILLED SYRINGE [Suspect]
     Indication: RHEUMATOID ARTHRITIS
     Route: 058
     Dates: start: 20120106, end: 20120106
  2. HUMIRA 40 MG/ 0.8 ML PRE-FILLED SYRINGE [Suspect]
     Dates: start: 20120120, end: 20120120
  3. HUMIRA 40 MG/ 0.8 ML PRE-FILLED SYRINGE [Suspect]
     Dates: start: 20120203, end: 20120203
  4. HUMIRA 40 MG/ 0.8 ML PRE-FILLED SYRINGE [Suspect]
     Dates: start: 20120217, end: 20120217
  5. HUMIRA 40 MG/ 0.8 ML PRE-FILLED SYRINGE [Suspect]
     Dates: start: 20120302, end: 20120302
  6. HUMIRA 40 MG/ 0.8 ML PRE-FILLED SYRINGE [Suspect]
     Dates: start: 20120316, end: 20120316
  7. HUMIRA 40 MG/ 0.8 ML PRE-FILLED SYRINGE [Suspect]
     Dates: start: 20120330, end: 20120330
  8. HUMIRA 40 MG/ 0.8 ML PRE-FILLED SYRINGE [Suspect]
     Dates: start: 20120413, end: 20120413
  9. HUMIRA 40 MG/ 0.8 ML PRE-FILLED SYRINGE [Suspect]
     Dates: start: 20120427, end: 20120427
  10. PREDNISOLONE [Suspect]
     Indication: SEGMENTED HYALINISING VASCULITIS
     Route: 048
     Dates: start: 20111101, end: 20111129
  11. PREDNISOLONE [Suspect]
     Indication: RHEUMATOID ARTHRITIS
     Dates: start: 20111213, end: 20111220
  12. PREDNISOLONE [Suspect]
     Dates: start: 20120106, end: 20120106
  13. PREDNISOLONE [Suspect]
     Dates: start: 20120120, end: 20120120
  14. PREDNISOLONE [Suspect]
     Dates: start: 20120207, end: 20120207
  15. PREDNISOLONE [Suspect]
     Dates: start: 20120217, end: 20120316
  16. PREDNISOLONE [Suspect]
     Dates: start: 20120330, end: 20120427
  17. PREDNISOLONE [Suspect]
     Dates: start: 20120525, end: 20120529
  18. PREDNISOLONE [Suspect]
     Dates: start: 20120601, end: 20120601
  19. ALENDRONATE SODIUM [Concomitant]
     Indication: PRODUCT USED FOR UNKNOWN INDICATION
     Route: 048
  20. OMEPRAZOLE [Concomitant]
     Indication: PRODUCT USED FOR UNKNOWN INDICATION
     Route: 048
  21. CELECOXIB [Concomitant]
     Indication: PRODUCT USED FOR UNKNOWN INDICATION
     Route: 048
  22. KAMISHOYOSAN [Concomitant]
     Indication: PRODUCT USED FOR UNKNOWN INDICATION
     Dosage: HERBAL MEDICINE
     Route: 048
  23. ASPIRIN [Concomitant]
     Indication: PRODUCT USED FOR UNKNOWN INDICATION
     Dosage: 100 MG DAILY
     Dates: start: 201002
  24. SARPOGRELATE HYDROCHLORIDE [Concomitant]
     Indication: PRODUCT USED FOR UNKNOWN INDICATION
     Dates: start: 200908
  25. ALPROSTADIL [Concomitant]
     Indication: PRODUCT USED FOR UNKNOWN INDICATION
     Dates: start: 20100121

REACTIONS (6)
  - Liver disorder [Fatal]
  - Disseminated tuberculosis [Fatal]
  - Malaise [Unknown]
  - Chills [Unknown]
  - Device related infection [Unknown]
  - Pyrexia [Unknown]
